FAERS Safety Report 5377983-9 (Version None)
Quarter: 2007Q2

REPORT INFORMATION
  Report Type: 
  Country: None (occurrence: None)
  Receive Date: 20070629
  Receipt Date: 20070625
  Transmission Date: 20071010
  Serious: Yes (Death)
  Sender: FDA-Public Use
  Company Number: 163-21880-06110491

PATIENT
  Age: 67 Year
  Sex: Male
  Weight: 88.4514 kg

DRUGS (5)
  1. REVLIMID [Suspect]
     Indication: HAIRY CELL LEUKAEMIA
     Dosage: SEE IMAGE
     Route: 048
     Dates: start: 20061019, end: 20061023
  2. REVLIMID [Suspect]
     Indication: MYELODYSPLASTIC SYNDROME
     Dosage: SEE IMAGE
     Route: 048
     Dates: start: 20061019, end: 20061023
  3. REVLIMID [Suspect]
     Indication: HAIRY CELL LEUKAEMIA
     Dosage: SEE IMAGE
     Route: 048
     Dates: start: 20061027, end: 20061116
  4. REVLIMID [Suspect]
     Indication: MYELODYSPLASTIC SYNDROME
     Dosage: SEE IMAGE
     Route: 048
     Dates: start: 20061027, end: 20061116
  5. ZOCOR [Concomitant]

REACTIONS (5)
  - HAEMOGLOBIN DECREASED [None]
  - HAIRY CELL LEUKAEMIA [None]
  - MALIGNANT NEOPLASM PROGRESSION [None]
  - RASH PRURITIC [None]
  - RED BLOOD CELL COUNT DECREASED [None]
